FAERS Safety Report 9297428 (Version 1)
Quarter: 2013Q2

REPORT INFORMATION
  Report Type: Report from Study
  Country: US (occurrence: US)
  Receive Date: 20130520
  Receipt Date: 20130520
  Transmission Date: 20140414
  Serious: Yes (Other)
  Sender: FDA-Public Use
  Company Number: US-BAYER-2013-050755

PATIENT
  Age: 25 Year
  Sex: Female

DRUGS (13)
  1. BETASERON [Suspect]
     Indication: MULTIPLE SCLEROSIS
     Dosage: 2 MIU, QOD
     Route: 058
     Dates: start: 20130411, end: 201304
  2. BETASERON [Suspect]
     Indication: MULTIPLE SCLEROSIS
     Dosage: 4 MIU, QOD
     Route: 058
     Dates: start: 201304, end: 20130508
  3. ATIVAN [Concomitant]
     Dosage: UNK UNK, TID
  4. GABAPENTIN [Concomitant]
  5. AMANTADINE [Concomitant]
  6. ATARAX [Concomitant]
  7. RELAFEN [Concomitant]
  8. OXYCODONE [Concomitant]
  9. FIORICET [Concomitant]
  10. TOPROL [Concomitant]
  11. VITAMIN D [Concomitant]
  12. BACLOFEN [Concomitant]
  13. BABY ASPIRIN [Concomitant]

REACTIONS (11)
  - Abasia [Not Recovered/Not Resolved]
  - Musculoskeletal stiffness [Not Recovered/Not Resolved]
  - Hypoaesthesia [Not Recovered/Not Resolved]
  - Tremor [Not Recovered/Not Resolved]
  - Fatigue [Not Recovered/Not Resolved]
  - Pain [Not Recovered/Not Resolved]
  - Headache [Not Recovered/Not Resolved]
  - Chills [Not Recovered/Not Resolved]
  - Emotional disorder [Not Recovered/Not Resolved]
  - Crying [Not Recovered/Not Resolved]
  - Miliaria [Not Recovered/Not Resolved]
